FAERS Safety Report 6307326-5 (Version None)
Quarter: 2009Q3

REPORT INFORMATION
  Report Type: 
  Country: None (occurrence: None)
  Receive Date: 20090813
  Receipt Date: 20090804
  Transmission Date: 20100115
  Serious: Yes (Life-Threatening, Hospitalization)
  Sender: FDA-Public Use
  Company Number: FR-TEVA-205262USA

PATIENT
  Sex: Male

DRUGS (9)
  1. BISELECT [Suspect]
     Route: 048
     Dates: start: 20090609, end: 20090626
  2. CLINDAMYCIN PHOSPHATE [Suspect]
     Route: 048
     Dates: start: 20090415, end: 20090626
  3. FUSIDIC ACID [Suspect]
     Route: 048
  4. ESOMEPRAZOLE MAGNESIUM [Suspect]
     Route: 048
     Dates: start: 20090609
  5. NIF-TEN [Concomitant]
  6. DICLOFENAC SODIUM [Concomitant]
  7. OMEPRAZOLE [Concomitant]
  8. ENOXAPARIN SODIUM [Concomitant]
     Dates: start: 20090401
  9. ULTRACET [Concomitant]
     Dates: start: 20090609

REACTIONS (4)
  - CYTOLYTIC HEPATITIS [None]
  - INFLAMMATION [None]
  - RENAL FAILURE ACUTE [None]
  - RHABDOMYOLYSIS [None]
